FAERS Safety Report 24696850 (Version 1)
Quarter: 2024Q4

REPORT INFORMATION
  Report Type: Spontaneous
  Country: CN (occurrence: CN)
  Receive Date: 20241204
  Receipt Date: 20241204
  Transmission Date: 20250115
  Serious: Yes (Other)
  Sender: PFIZER
  Company Number: CN-PFIZER INC-PV202400156381

PATIENT
  Age: 11 Year
  Sex: Male
  Weight: 26 kg

DRUGS (4)
  1. METHOTREXATE SODIUM [Suspect]
     Active Substance: METHOTREXATE SODIUM
     Indication: Chemotherapy
     Dosage: 5.1 ML, 1X/DAY (WITH 0.9% SODIUM CHLORIDE INJECTION 45ML LS)
     Route: 041
     Dates: start: 20241113, end: 20241114
  2. METHOTREXATE SODIUM [Suspect]
     Active Substance: METHOTREXATE SODIUM
     Indication: Neoplasm malignant
     Dosage: 22.95 ML, 1X/DAY (WITH 0.9% SODIUM CHLORIDE INJECTION 250ML LS)
     Route: 041
     Dates: start: 20241113, end: 20241114
  3. SODIUM CHLORIDE [Concomitant]
     Active Substance: SODIUM CHLORIDE
     Indication: Vehicle solution use
     Dosage: 45 ML, 1X/DAY
     Route: 041
     Dates: start: 20241113, end: 20241114
  4. SODIUM CHLORIDE [Concomitant]
     Active Substance: SODIUM CHLORIDE
     Indication: Vehicle solution use
     Dosage: 250 ML, 2X/DAY
     Route: 041
     Dates: start: 20241113, end: 20241114

REACTIONS (4)
  - Drug level abnormal [Recovering/Resolving]
  - Toxicity to various agents [Recovering/Resolving]
  - Dizziness [Unknown]
  - Chest discomfort [Unknown]

NARRATIVE: CASE EVENT DATE: 20241101
